FAERS Safety Report 10100869 (Version 1)
Quarter: 2014Q2

REPORT INFORMATION
  Report Type: Spontaneous
  Country: US (occurrence: US)
  Receive Date: 20140423
  Receipt Date: 20140423
  Transmission Date: 20141212
  Serious: No
  Sender: FDA-Public Use
  Company Number: US-009507513-1404USA004671

PATIENT
  Sex: Female
  Weight: 62.59 kg

DRUGS (2)
  1. MEVACOR TABLET [Suspect]
     Indication: BLOOD CHOLESTEROL INCREASED
     Route: 048
  2. PRAVACHOL [Suspect]
     Indication: BLOOD CHOLESTEROL INCREASED

REACTIONS (3)
  - Bone pain [Unknown]
  - Adverse event [Unknown]
  - Dyspnoea [Unknown]
